FAERS Safety Report 21638069 (Version 1)
Quarter: 2022Q4

REPORT INFORMATION
  Report Type: Spontaneous
  Country: US (occurrence: US)
  Receive Date: 20221124
  Receipt Date: 20221124
  Transmission Date: 20230113
  Serious: No
  Sender: FDA-Public Use
  Company Number: US-JNJFOC-20221140797

PATIENT
  Age: 56 Year
  Sex: Female
  Weight: 44.9 kg

DRUGS (9)
  1. PEPCID [Suspect]
     Active Substance: FAMOTIDINE
     Indication: Infusion site pain
     Route: 065
     Dates: start: 202210
  2. REMODULIN [Concomitant]
     Active Substance: TREPROSTINIL
     Indication: Pulmonary arterial hypertension
     Dosage: 2.5 MG/ML
     Route: 058
     Dates: start: 202209
  3. REMODULIN [Concomitant]
     Active Substance: TREPROSTINIL
     Route: 058
  4. LORATADINE [Concomitant]
     Active Substance: LORATADINE
     Indication: Infusion site pain
  5. CHLORPHENIRAMINE [Concomitant]
     Active Substance: CHLORPHENIRAMINE
     Indication: Infusion site pain
  6. IBUPROFEN [Concomitant]
     Active Substance: IBUPROFEN
     Indication: Infusion site pain
  7. TYLENOL [Concomitant]
     Active Substance: ACETAMINOPHEN
     Indication: Infusion site pain
  8. LIDOCAINE [Concomitant]
     Active Substance: LIDOCAINE
     Indication: Infusion site pain
  9. ARNICA [ARNICA MONTANA] [Concomitant]
     Indication: Infusion site pain

REACTIONS (4)
  - Decreased appetite [Unknown]
  - Bowel movement irregularity [Unknown]
  - Gastric disorder [Unknown]
  - Off label use [Unknown]

NARRATIVE: CASE EVENT DATE: 20221001
